FAERS Safety Report 5738541-7 (Version None)
Quarter: 2008Q2

REPORT INFORMATION
  Report Type: 
  Country: None (occurrence: None)
  Receive Date: 20080515
  Receipt Date: 20080318
  Transmission Date: 20081010
  Serious: No
  Sender: FDA-Public Use
  Company Number: US-BAYER-200817631NA

PATIENT
  Age: 38 Year
  Sex: Female

DRUGS (8)
  1. YAZ [Suspect]
     Indication: ENDOMETRIOSIS
     Route: 048
     Dates: start: 20080201
  2. ZANAFLEX [Concomitant]
     Indication: ENDOMETRIOSIS
     Dosage: UNIT DOSE: 4 MG
     Route: 048
  3. OXYCODIN ES [Concomitant]
     Indication: ENDOMETRIOSIS
     Dosage: UNIT DOSE: 80 MG
     Route: 048
  4. HYDROCODONE BITARTRATE [Concomitant]
     Indication: PAIN
     Route: 048
  5. LITHIUM CARBONATE [Concomitant]
     Indication: DEPRESSION
     Dosage: UNIT DOSE: 300 MG
     Route: 048
  6. ROZEREM [Concomitant]
     Indication: INSOMNIA
     Route: 048
  7. ALPRAZOLAM [Concomitant]
     Indication: ANXIETY
     Dosage: UNIT DOSE: 2 MG
     Route: 048
  8. PHENERGAN [Concomitant]
     Indication: NAUSEA
     Dosage: UNIT DOSE: 25 MG
     Route: 048

REACTIONS (1)
  - ENDOMETRIOSIS [None]
